FAERS Safety Report 10233652 (Version 1)
Quarter: 2014Q2

REPORT INFORMATION
  Report Type: Spontaneous
  Country: JP (occurrence: JP)
  Receive Date: 20140612
  Receipt Date: 20140612
  Transmission Date: 20141212
  Serious: Yes (Hospitalization, Other)
  Sender: FDA-Public Use
  Company Number: JP-WATSON-2014-13116

PATIENT
  Age: 33 Year
  Sex: Female
  Weight: 78 kg

DRUGS (6)
  1. CISPLATIN (UNKNOWN) [Suspect]
     Indication: OVARIAN GERM CELL TUMOUR MIXED
     Dosage: 20 MG/M2, UNK; ON DAYS 1-5
     Route: 065
  2. ETOPOSIDE (UNKNOWN) [Suspect]
     Indication: OVARIAN GERM CELL TUMOUR MIXED
     Dosage: 100 MG/M2, UNK; ON DAYS 1-5
     Route: 065
  3. BLEOMYCIN [Suspect]
     Indication: OVARIAN GERM CELL TUMOUR MIXED
     Dosage: 10 MG/M2, UNK; ON DAY 2, 9 AND 16
     Route: 065
  4. DEXAMETHASONE [Concomitant]
     Indication: OVARIAN GERM CELL TUMOUR MIXED
     Dosage: 4 MG, UNK; DAYS 1-5
     Route: 042
  5. ONDANSETRON [Concomitant]
     Indication: OVARIAN GERM CELL TUMOUR MIXED
     Dosage: 4 MG, UNK; DAYS 1-5
     Route: 042
  6. APREPITANT [Concomitant]
     Indication: OVARIAN GERM CELL TUMOUR MIXED
     Dosage: 125 MG ON DAY 1 AND 80 MG ON DAYS 2-3
     Route: 048

REACTIONS (4)
  - Cerebral infarction [Recovered/Resolved]
  - Pulmonary embolism [Recovered/Resolved]
  - Pelvic venous thrombosis [Recovered/Resolved]
  - Deep vein thrombosis [Recovered/Resolved]
